FAERS Safety Report 4679630-8 (Version None)
Quarter: 2005Q2

REPORT INFORMATION
  Report Type: 
  Country: None (occurrence: None)
  Receive Date: 20050531
  Receipt Date: 20050509
  Transmission Date: 20051028
  Serious: Yes (Other)
  Sender: FDA-Public Use
  Company Number: PAR_0063_2005

PATIENT

DRUGS (2)
  1. VERAPAMIL [Suspect]
     Indication: ATRIAL FIBRILLATION
     Dosage: DF
  2. QUINIDINE HCL [Suspect]
     Indication: ATRIAL FIBRILLATION
     Dosage: DF

REACTIONS (1)
  - VENTRICULAR TACHYCARDIA [None]
